FAERS Safety Report 9988183 (Version 3)
Quarter: 2014Q2

REPORT INFORMATION
  Report Type: Spontaneous
  Country: US (occurrence: US)
  Receive Date: 20140309
  Receipt Date: 20140428
  Transmission Date: 20141212
  Serious: No
  Sender: FDA-Public Use
  Company Number: US-009507513-1403USA000931

PATIENT
  Age: 17 Year
  Sex: Female
  Weight: 41 kg

DRUGS (2)
  1. NEXPLANON [Suspect]
     Indication: CONTRACEPTION
     Dosage: 1 ROD
     Route: 059
     Dates: start: 20140226, end: 20140226
  2. NEXPLANON [Suspect]
     Dosage: 1 ROD
     Route: 059
     Dates: start: 20140228

REACTIONS (3)
  - Device difficult to use [Recovered/Resolved]
  - Device expulsion [Unknown]
  - No adverse event [Unknown]
